FAERS Safety Report 18097377 (Version 1)
Quarter: 2020Q3

REPORT INFORMATION
  Report Type: Spontaneous
  Country: FR (occurrence: FR)
  Receive Date: 20200731
  Receipt Date: 20200731
  Transmission Date: 20201103
  Serious: Yes (Life-Threatening, Hospitalization)
  Sender: FDA-Public Use
  Company Number: FR-CADILA HEALTHCARE LIMITED-FR-ZYDUS-024222

PATIENT
  Age: 49 Year
  Sex: Female

DRUGS (3)
  1. LERCANIDIPINE [Suspect]
     Active Substance: LERCANIDIPINE
     Indication: SUICIDE ATTEMPT
     Dosage: 500 MILLIGRAM
     Route: 048
     Dates: start: 20180413, end: 20180413
  2. CANDESARTAN. [Suspect]
     Active Substance: CANDESARTAN
     Indication: PRODUCT USED FOR UNKNOWN INDICATION
  3. BISOPROLOL [Suspect]
     Active Substance: BISOPROLOL
     Indication: SUICIDE ATTEMPT
     Dosage: 300 MILLIGRAM
     Route: 048
     Dates: start: 20180413, end: 20180413

REACTIONS (5)
  - Somnolence [Recovered/Resolved]
  - Septic shock [Recovered/Resolved]
  - Hypotension [Recovered/Resolved]
  - Vasoplegia syndrome [Recovered/Resolved]
  - Bradycardia [Recovered/Resolved]

NARRATIVE: CASE EVENT DATE: 20180414
